FAERS Safety Report 5025093-2 (Version None)
Quarter: 2006Q2

REPORT INFORMATION
  Report Type: 
  Country: None (occurrence: None)
  Receive Date: 20060607
  Receipt Date: 20060526
  Transmission Date: 20061013
  Serious: Yes (Other)
  Sender: FDA-Public Use
  Company Number: 225096

PATIENT
  Age: 17 Year
  Sex: Male

DRUGS (2)
  1. NUTROPIN AQ [Suspect]
     Indication: GROWTH HORMONE DEFICIENCY
     Dosage: 4.4 MG, QD, SUBCUTANEOUS
     Route: 058
     Dates: start: 20020909, end: 20060510
  2. PROVENTIL (ALBUTEROL/ALBUTEROL SULFATE) [Concomitant]

REACTIONS (1)
  - ALVEOLAR SOFT PART SARCOMA [None]
